FAERS Safety Report 5901509-1 (Version None)
Quarter: 2008Q3

REPORT INFORMATION
  Report Type: 
  Country: None (occurrence: None)
  Receive Date: 20080926
  Receipt Date: 20080926
  Transmission Date: 20090109
  Serious: Yes (Other)
  Sender: FDA-Public Use
  Company Number: None

PATIENT
  Sex: Male
  Weight: 35.8342 kg

DRUGS (1)
  1. KLONOPIN [Suspect]
     Indication: CONVULSION
     Dosage: 1 1/2 TAB BY G-TUBE AM 1 AT NOON, 1 AT PM
     Dates: start: 20080901

REACTIONS (2)
  - CONVULSION [None]
  - THERAPEUTIC RESPONSE UNEXPECTED WITH DRUG SUBSTITUTION [None]
